FAERS Safety Report 4715270-X (Version None)
Quarter: 2005Q3

REPORT INFORMATION
  Report Type: 
  Country: None (occurrence: None)
  Receive Date: 20050715
  Receipt Date: 20050711
  Transmission Date: 20060218
  Serious: Yes (Hospitalization)
  Sender: FDA-Public Use
  Company Number: PHBS2005NZ09810

PATIENT
  Age: 61 Year
  Sex: Male

DRUGS (1)
  1. CLOZARIL [Suspect]
     Indication: BIPOLAR DISORDER
     Dosage: 300 MG/DAY
     Route: 048
     Dates: start: 20031015, end: 20050701

REACTIONS (5)
  - AMYOTROPHIC LATERAL SCLEROSIS [None]
  - CARDIOMYOPATHY [None]
  - DEMENTIA [None]
  - EJECTION FRACTION DECREASED [None]
  - RESPIRATORY FAILURE [None]
